FAERS Safety Report 18366975 (Version 1)
Quarter: 2020Q4

REPORT INFORMATION
  Report Type: Spontaneous
  Country: CN (occurrence: CN)
  Receive Date: 20201009
  Receipt Date: 20201009
  Transmission Date: 20210114
  Serious: Yes (Other)
  Sender: FDA-Public Use
  Company Number: CN-BAXTER-2020BAX020341

PATIENT
  Age: 59 Year
  Sex: Female
  Weight: 59 kg

DRUGS (10)
  1. 0.9% SODIUM CHLORIDE INJECTION [Suspect]
     Active Substance: SODIUM CHLORIDE
     Dosage: EPIRUBICIN HYDROCHLORIDE 80 MG + 0.9% SODIUM CHLORIDE 100 ML
     Route: 041
     Dates: start: 20200905, end: 20200905
  2. ENDOXAN [Suspect]
     Active Substance: CYCLOPHOSPHAMIDE
     Dosage: CYCLOPHOSPHAMIDE + 0.9% SODIUM CHLORIDE, DOSE REINTRODUCED
     Route: 041
     Dates: start: 202009
  3. 0.9% SODIUM CHLORIDE INJECTION [Suspect]
     Active Substance: SODIUM CHLORIDE
     Dosage: EPIRUBICIN HYDROCHLORIDE + 0.9% SODIUM CHLORIDE, DOSE REINTRODUCED
     Route: 041
     Dates: start: 202009
  4. EPIRUBICIN HYDROCHLORIDE. [Suspect]
     Active Substance: EPIRUBICIN HYDROCHLORIDE
     Dosage: EPIRUBICIN HYDROCHLORIDE + 0.9% SODIUM CHLORIDE, DOSE REINTRODUCED
     Route: 041
     Dates: start: 202009
  5. 0.9% SODIUM CHLORIDE INJECTION [Suspect]
     Active Substance: SODIUM CHLORIDE
     Indication: MEDICATION DILUTION
     Dosage: CYCLOPHOSPHAMIDE 1 G + 0.9% SODIUM CHLORIDE NEEDLE 50 ML
     Route: 041
     Dates: start: 20200904, end: 20200904
  6. 0.9% SODIUM CHLORIDE INJECTION [Suspect]
     Active Substance: SODIUM CHLORIDE
     Dosage: EPIRUBICIN HYDROCHLORIDE 70 MG + 0.9% SODIUM CHLORIDE NEEDLE 100 ML
     Route: 041
     Dates: start: 20200904, end: 20200904
  7. 0.9% SODIUM CHLORIDE INJECTION [Suspect]
     Active Substance: SODIUM CHLORIDE
     Dosage: CYCLOPHOSPHAMIDE + 0.9% SODIUM CHLORIDE, DOSE REINTRODUCED
     Route: 041
     Dates: start: 202009
  8. EPIRUBICIN HYDROCHLORIDE. [Suspect]
     Active Substance: EPIRUBICIN HYDROCHLORIDE
     Dosage: EPIRUBICIN HYDROCHLORIDE 80 MG + 0.9% SODIUM CHLORIDE 100 ML 150 MG IN TOTAL, DIVIDED INTO TWO DAYS.
     Route: 041
     Dates: start: 20200905, end: 20200905
  9. ENDOXAN [Suspect]
     Active Substance: CYCLOPHOSPHAMIDE
     Indication: BREAST CANCER FEMALE
     Dosage: CYCLOPHOSPHAMIDE 1 G + 0.9% SODIUM CHLORIDE NEEDLE 50 ML
     Route: 041
     Dates: start: 20200904, end: 20200904
  10. EPIRUBICIN HYDROCHLORIDE. [Suspect]
     Active Substance: EPIRUBICIN HYDROCHLORIDE
     Indication: BREAST CANCER FEMALE
     Dosage: EPIRUBICIN HYDROCHLORIDE 70 MG + 0.9% SODIUM CHLORIDE 100 ML 150 MG IN TOTAL, DIVIDED INTO TWO DAYS.
     Route: 041
     Dates: start: 20200904, end: 20200904

REACTIONS (1)
  - Myelosuppression [Recovered/Resolved]

NARRATIVE: CASE EVENT DATE: 20200914
